FAERS Safety Report 19077454 (Version 6)
Quarter: 2023Q1

REPORT INFORMATION
  Report Type: Report from Study
  Country: JP (occurrence: JP)
  Receive Date: 20210331
  Receipt Date: 20230221
  Transmission Date: 20230417
  Serious: Yes (Hospitalization, Other)
  Sender: FDA-Public Use
  Company Number: JP-GLAXOSMITHKLINE-JP2017JPN092366

PATIENT

DRUGS (44)
  1. DOLUTEGRAVIR [Suspect]
     Active Substance: DOLUTEGRAVIR
     Indication: HIV infection
     Dosage: 50 MG, 1D
     Route: 048
     Dates: start: 20161021, end: 20180402
  2. DOLUTEGRAVIR [Suspect]
     Active Substance: DOLUTEGRAVIR
     Dosage: 50 MG, 1D
     Route: 048
     Dates: start: 20180501, end: 20180625
  3. DOLUTEGRAVIR [Suspect]
     Active Substance: DOLUTEGRAVIR
     Dosage: 50 MG, 1D
     Route: 048
     Dates: start: 20181018, end: 20190402
  4. DOLUTEGRAVIR [Suspect]
     Active Substance: DOLUTEGRAVIR
     Dosage: 50 MG, 1D
     Route: 048
     Dates: start: 20191012
  5. ATOVAQUONE [Suspect]
     Active Substance: ATOVAQUONE
     Indication: Pneumocystis jirovecii pneumonia
     Dosage: 750 MG, BID
     Route: 048
     Dates: start: 20160930, end: 20161012
  6. AMOXICILLIN [Suspect]
     Active Substance: AMOXICILLIN
     Indication: Pericoronitis
     Dosage: UNK
     Route: 048
     Dates: start: 20161006, end: 20161018
  7. AMPICILLIN SODIUM\SULBACTAM SODIUM [Suspect]
     Active Substance: AMPICILLIN SODIUM\SULBACTAM SODIUM
     Indication: Pneumonia
     Dosage: UNK
     Dates: start: 20190927, end: 20191006
  8. ALBUTEROL [Suspect]
     Active Substance: ALBUTEROL
     Indication: Prophylaxis
     Dosage: UNK
     Route: 055
     Dates: start: 20191003, end: 20200420
  9. TRUVADA [Concomitant]
     Active Substance: EMTRICITABINE\TENOFOVIR DISOPROXIL FUMARATE
     Indication: HIV infection
     Dosage: 1 DF, 1D
     Dates: start: 20161021, end: 20180402
  10. TRUVADA [Concomitant]
     Active Substance: EMTRICITABINE\TENOFOVIR DISOPROXIL FUMARATE
     Dosage: 1 DF, 1D
     Dates: start: 20180501, end: 20180625
  11. TRUVADA [Concomitant]
     Active Substance: EMTRICITABINE\TENOFOVIR DISOPROXIL FUMARATE
     Dosage: 1 DF, 1D
     Dates: start: 20181018, end: 20190221
  12. VALGANCICLOVIR [Concomitant]
     Active Substance: VALGANCICLOVIR
     Indication: Cytomegalovirus infection
     Dosage: 900 MG, BID
     Dates: start: 20161015, end: 20161021
  13. AZITHROMYCIN DIHYDRATE [Concomitant]
     Active Substance: AZITHROMYCIN DIHYDRATE
     Indication: Opportunistic infection prophylaxis
     Dosage: 1200 MG, WE
     Dates: start: 20160927, end: 20170224
  14. SULFAMETHOXAZOLE\TRIMETHOPRIM [Concomitant]
     Active Substance: SULFAMETHOXAZOLE\TRIMETHOPRIM
     Indication: Pneumocystis jirovecii pneumonia
     Dosage: 3 DF, TID
     Dates: start: 20160921, end: 20160929
  15. LOCOID CREAM [Concomitant]
     Indication: Pruritus
     Dosage: ADEQUATE DOSE, PRN
     Dates: start: 20170124, end: 20170324
  16. LOCOID CREAM [Concomitant]
     Dosage: UNK
     Dates: start: 20191205, end: 20200220
  17. LOCOID CREAM [Concomitant]
     Dosage: UNK
     Dates: start: 20220105, end: 20220118
  18. PENTAMIDINE [Concomitant]
     Active Substance: PENTAMIDINE
     Indication: Antifungal prophylaxis
     Dosage: 100 MG, ONCE MONTHLY
     Dates: start: 20161201, end: 20181120
  19. PENTAMIDINE [Concomitant]
     Active Substance: PENTAMIDINE
     Dosage: UNK
     Dates: start: 20191003, end: 20200420
  20. DESCOVY [Concomitant]
     Active Substance: EMTRICITABINE\TENOFOVIR ALAFENAMIDE FUMARATE
     Indication: HIV infection
     Dosage: 1 DF, 1D
     Dates: start: 20190222, end: 20190402
  21. DESCOVY [Concomitant]
     Active Substance: EMTRICITABINE\TENOFOVIR ALAFENAMIDE FUMARATE
     Dosage: 1 DF, 1D
     Dates: start: 20191012
  22. BENZETHONIUM CHLORIDE [Concomitant]
     Active Substance: BENZETHONIUM CHLORIDE
     Indication: Prophylaxis
     Dosage: UNK
     Dates: start: 20181102, end: 201812
  23. BENZETHONIUM CHLORIDE [Concomitant]
     Active Substance: BENZETHONIUM CHLORIDE
     Dosage: 40 ML
     Dates: start: 20220111
  24. LEVOFLOXACIN [Concomitant]
     Active Substance: LEVOFLOXACIN
     Dosage: UNK
     Dates: start: 20181102, end: 201812
  25. ZOLPIDEM TARTRATE OD TABLET [Concomitant]
     Indication: Prophylaxis
     Dosage: UNK
     Dates: start: 20190930, end: 20191002
  26. ZOLPIDEM TARTRATE OD TABLET [Concomitant]
     Dosage: UNK
     Dates: start: 20191011, end: 2019
  27. LUNESTA TABLETS [Concomitant]
     Indication: Prophylaxis
     Dosage: UNK
     Dates: start: 20191003, end: 20191004
  28. FEXOFENADINE HYDROCHLORIDE OD TABLET [Concomitant]
     Dosage: UNK
     Dates: start: 20191006, end: 20191009
  29. FEXOFENADINE HYDROCHLORIDE OD TABLET [Concomitant]
     Dosage: 60 MG
     Dates: start: 20200807, end: 20220118
  30. FAMOTIDINE [Concomitant]
     Active Substance: FAMOTIDINE
     Indication: Prophylaxis
     Dosage: UNK
     Dates: start: 20191009, end: 20191028
  31. DEXTROSE\SODIUM CHLORIDE\SODIUM LACTATE [Concomitant]
     Active Substance: DEXTROSE\SODIUM CHLORIDE\SODIUM LACTATE
     Indication: Alcohol poisoning
     Dosage: UNK
     Dates: start: 20191101, end: 20191102
  32. DEXTROSE\SODIUM CHLORIDE\SODIUM LACTATE [Concomitant]
     Active Substance: DEXTROSE\SODIUM CHLORIDE\SODIUM LACTATE
     Indication: Fluid replacement
     Dosage: 500 ML
     Dates: start: 20220317, end: 20220317
  33. NAUZELIN OD TABLETS [Concomitant]
     Indication: Prophylaxis
     Dosage: UNK
     Dates: start: 20200131, end: 20200221
  34. NAUZELIN OD TABLETS [Concomitant]
     Indication: Gastroenteritis
     Dosage: UNK
     Dates: start: 20210322, end: 20210326
  35. NAUZELIN OD TABLETS [Concomitant]
     Dosage: 10 MG
     Dates: start: 20220317
  36. PREDONINE OPHTHALMIC OINTMENT [Concomitant]
     Dosage: UNK
     Dates: start: 20200807, end: 20201021
  37. ACETAMINOPHEN [Concomitant]
     Active Substance: ACETAMINOPHEN
     Indication: Prophylaxis
     Dosage: UNK
     Dates: start: 20210316, end: 20210319
  38. ACETAMINOPHEN [Concomitant]
     Active Substance: ACETAMINOPHEN
     Dosage: 200 MG
     Dates: start: 20220113, end: 202201
  39. TRAZODONE HYDROCHLORIDE [Concomitant]
     Active Substance: TRAZODONE HYDROCHLORIDE
     Dosage: 25 MG
     Dates: start: 20220108, end: 20220228
  40. DIPHENHYDRAMINE [Concomitant]
     Active Substance: DIPHENHYDRAMINE
     Dosage: 30 G
     Dates: start: 20220115, end: 202201
  41. ADENOSINE TRIPHOSPHATE [Concomitant]
     Active Substance: ADENOSINE TRIPHOSPHATE
     Dosage: 10 MG
     Dates: start: 20220201, end: 20220201
  42. VERAPAMIL HYDROCHLORIDE [Concomitant]
     Active Substance: VERAPAMIL HYDROCHLORIDE
     Dosage: 40 MG
     Dates: start: 20220224
  43. RABEPRAZOLE NA TABLET [Concomitant]
     Indication: Prophylaxis
     Dosage: 10 MG
     Dates: start: 20220224, end: 20220302
  44. SULPIRIDE [Concomitant]
     Active Substance: SULPIRIDE
     Dosage: 50 MG
     Dates: start: 20220317

REACTIONS (19)
  - Drug eruption [Recovered/Resolved]
  - Folliculitis [Recovering/Resolving]
  - Pruritus [Not Recovered/Not Resolved]
  - Pharyngitis [Recovered/Resolved]
  - Pericoronitis [Recovering/Resolving]
  - Pneumonia [Recovering/Resolving]
  - Oral candidiasis [Recovered/Resolved]
  - Alcohol poisoning [Recovered/Resolved]
  - Lip erosion [Recovered/Resolved]
  - Gastroenteritis [Recovering/Resolving]
  - Drug eruption [Recovered/Resolved]
  - Syphilis [Not Recovered/Not Resolved]
  - Hepatic steatosis [Not Recovered/Not Resolved]
  - Water intoxication [Recovering/Resolving]
  - Abdominal symptom [Recovering/Resolving]
  - Hypertension [Not Recovered/Not Resolved]
  - Treatment noncompliance [Recovered/Resolved]
  - Treatment noncompliance [Unknown]
  - Product use in unapproved indication [Unknown]

NARRATIVE: CASE EVENT DATE: 20161009
